FAERS Safety Report 10196261 (Version 1)
Quarter: 2014Q2

REPORT INFORMATION
  Report Type: Report from Study
  Country: US (occurrence: US)
  Receive Date: 20140527
  Receipt Date: 20140527
  Transmission Date: 20141212
  Serious: Yes (Other)
  Sender: FDA-Public Use
  Company Number: US-JNJFOC-20140512887

PATIENT
  Age: 70 Year
  Sex: Female
  Weight: 78.02 kg

DRUGS (9)
  1. REMICADE [Suspect]
     Indication: ARTHRITIS
     Route: 042
     Dates: start: 20121217
  2. ESTRADIOL [Suspect]
     Indication: PRODUCT USED FOR UNKNOWN INDICATION
     Route: 065
     Dates: end: 201405
  3. PROGRAFT [Suspect]
     Indication: TRANSPLANT
     Route: 048
  4. LYRICA [Concomitant]
     Route: 065
  5. ATORVASTATIN [Concomitant]
     Route: 065
  6. ENALAPRIL [Concomitant]
     Route: 065
  7. HYDROXYCHLOROQUINE [Concomitant]
     Route: 065
  8. LANTUS [Concomitant]
     Indication: DIABETES MELLITUS
     Route: 058
     Dates: start: 2005
  9. NOVOLOG [Concomitant]
     Indication: DIABETES MELLITUS
     Route: 058
     Dates: start: 2005

REACTIONS (1)
  - Breast cancer [Not Recovered/Not Resolved]
